FAERS Safety Report 24696396 (Version 1)
Quarter: 2024Q4

REPORT INFORMATION
  Report Type: Spontaneous
  Country: US (occurrence: US)
  Receive Date: 20241204
  Receipt Date: 20241204
  Transmission Date: 20250115
  Serious: Yes (Hospitalization, Other)
  Sender: GLAND PHARMA LTD
  Company Number: US-GLANDPHARMA-US-2024GLNLIT01096

PATIENT
  Age: 35 Year
  Sex: Female

DRUGS (1)
  1. KETAMINE HYDROCHLORIDE [Suspect]
     Active Substance: KETAMINE HYDROCHLORIDE
     Indication: Post-traumatic stress disorder
     Route: 060

REACTIONS (10)
  - Respiratory failure [Recovering/Resolving]
  - Unresponsive to stimuli [Recovering/Resolving]
  - Moaning [Recovering/Resolving]
  - Rhonchi [Recovering/Resolving]
  - Increased bronchial secretion [Recovering/Resolving]
  - Salivary hypersecretion [Recovering/Resolving]
  - Nystagmus [Recovering/Resolving]
  - Lacrimation increased [Recovering/Resolving]
  - Overdose [Unknown]
  - Product use in unapproved indication [Unknown]
